FAERS Safety Report 20676887 (Version 2)
Quarter: 2022Q2

REPORT INFORMATION
  Report Type: Spontaneous
  Country: DE (occurrence: DE)
  Receive Date: 20220406
  Receipt Date: 20220413
  Transmission Date: 20220720
  Serious: Yes (Other)
  Sender: FDA-Public Use
  Company Number: DE-BAYER-2022A042371

PATIENT
  Age: 67 Year
  Sex: Male

DRUGS (9)
  1. RIVAROXABAN [Suspect]
     Active Substance: RIVAROXABAN
     Indication: Peripheral arterial occlusive disease
     Dosage: 2.5 MG
     Route: 048
  2. RIVAROXABAN [Suspect]
     Active Substance: RIVAROXABAN
     Indication: Coronary artery disease
     Route: 048
  3. ASPIRIN [Suspect]
     Active Substance: ASPIRIN
     Indication: Coronary artery disease
     Dosage: 100 MG
     Route: 065
     Dates: start: 2011
  4. ASPIRIN [Suspect]
     Active Substance: ASPIRIN
     Indication: Carotid artery stenosis
  5. ASPIRIN [Suspect]
     Active Substance: ASPIRIN
     Indication: Peripheral arterial occlusive disease
  6. RANEXA [RANOLAZINE] [Concomitant]
  7. RAMIPRIL [Concomitant]
     Active Substance: RAMIPRIL
  8. BISOPROLOL [Concomitant]
     Active Substance: BISOPROLOL
  9. ATORVASTATIN [Concomitant]
     Active Substance: ATORVASTATIN

REACTIONS (2)
  - Procedural haemorrhage [Recovered/Resolved]
  - Peripheral artery stenosis [Unknown]
